FAERS Safety Report 7977912-5 (Version None)
Quarter: 2011Q4

REPORT INFORMATION
  Report Type: 
  Country: None (occurrence: None)
  Receive Date: 20111214
  Receipt Date: 20111205
  Transmission Date: 20120403
  Serious: Yes (Hospitalization)
  Sender: FDA-Public Use
  Company Number: US-BIOGENIDEC-2011BI042638

PATIENT
  Sex: Male

DRUGS (1)
  1. TYSABRI [Suspect]
     Indication: MULTIPLE SCLEROSIS
     Route: 042
     Dates: start: 20080805, end: 20110928

REACTIONS (7)
  - PAIN IN EXTREMITY [None]
  - BURNING SENSATION [None]
  - INSOMNIA [None]
  - PAIN [None]
  - BACK PAIN [None]
  - OEDEMA PERIPHERAL [None]
  - BACK INJURY [None]
